FAERS Safety Report 20758678 (Version 3)
Quarter: 2022Q2

REPORT INFORMATION
  Report Type: Report from Study
  Country: CN (occurrence: CN)
  Receive Date: 20220427
  Receipt Date: 20220513
  Transmission Date: 20220721
  Serious: Yes (Hospitalization)
  Sender: FDA-Public Use
  Company Number: CN-ABBVIE-22P-035-4364003-00

PATIENT
  Age: 67 Year
  Sex: Female
  Weight: 61 kg

DRUGS (11)
  1. VENETOCLAX [Suspect]
     Active Substance: VENETOCLAX
     Indication: Myelodysplastic syndrome
     Dosage: 14 DAYS ON, 14 DAYS OFF
     Route: 048
     Dates: start: 20220324, end: 20220429
  2. AZACITIDINE [Suspect]
     Active Substance: AZACITIDINE
     Indication: Myelodysplastic syndrome
     Dosage: 7 DAYS WITHIN 9 CALENDAR DAYS/CYCLE
     Route: 058
     Dates: start: 20220324, end: 20220429
  3. INDAPAMIDE [Concomitant]
     Active Substance: INDAPAMIDE
     Indication: Hypertension
     Route: 048
     Dates: start: 2008
  4. FENOFIBRATE [Concomitant]
     Active Substance: FENOFIBRATE
     Indication: Hypertension
     Route: 048
     Dates: start: 2012
  5. COMPOUND SALVIA MILTIORRHIZA TABLET [Concomitant]
     Indication: Cardiovascular event prophylaxis
     Route: 048
     Dates: start: 2012
  6. COMPOUND SALVIA MILTIORRHIZA TABLET [Concomitant]
     Indication: Prophylaxis
  7. POTASSIUM CHLORIDE SUSTAINED-RELEASE TABLET [Concomitant]
     Indication: Mineral supplementation
     Route: 048
     Dates: start: 20220324
  8. DIYUSHENGBAI TABLET [Concomitant]
     Indication: White blood cell count decreased
     Route: 048
     Dates: start: 20220409, end: 20220418
  9. SHENGXUEBAOHEJI [Concomitant]
     Indication: Anaemia
     Route: 048
     Dates: start: 20220409, end: 20220419
  10. COMPOUND SOAP ALUM PILLS [Concomitant]
     Indication: Anaemia
     Route: 048
     Dates: start: 20220409, end: 20220419
  11. LIDOCAINE HYDROCHLORIDE [Concomitant]
     Active Substance: LIDOCAINE HYDROCHLORIDE
     Indication: Anaesthesia procedure
     Route: 058
     Dates: start: 20220412, end: 20220412

REACTIONS (2)
  - Anaemia [Recovered/Resolved]
  - White blood cell count decreased [Recovered/Resolved]

NARRATIVE: CASE EVENT DATE: 20220412
